FAERS Safety Report 24988487 (Version 2)
Quarter: 2025Q1

REPORT INFORMATION
  Report Type: Spontaneous
  Country: ZA (occurrence: ZA)
  Receive Date: 20250220
  Receipt Date: 20250307
  Transmission Date: 20250409
  Serious: Yes (Other)
  Sender: AUROBINDO
  Company Number: ZA-AUROBINDO-AUR-APL-2025-008688

PATIENT
  Age: 3 Year
  Sex: Male

DRUGS (12)
  1. AZITHROMYCIN [Suspect]
     Active Substance: AZITHROMYCIN
     Indication: Corynebacterium infection
  2. AZITHROMYCIN [Suspect]
     Active Substance: AZITHROMYCIN
     Indication: Upper airway obstruction
  3. CEPHALOSPORIN C [Suspect]
     Active Substance: CEPHALOSPORIN C
     Indication: Corynebacterium infection
     Route: 065
  4. CEPHALOSPORIN C [Suspect]
     Active Substance: CEPHALOSPORIN C
     Indication: Upper airway obstruction
  5. OXYGEN [Concomitant]
     Active Substance: OXYGEN
     Indication: Product used for unknown indication
     Route: 065
  6. ALBUTEROL [Concomitant]
     Active Substance: ALBUTEROL
     Indication: Corynebacterium infection
     Route: 065
  7. ALBUTEROL [Concomitant]
     Active Substance: ALBUTEROL
     Indication: Upper airway obstruction
  8. EPINEPHRINE [Concomitant]
     Active Substance: EPINEPHRINE
     Indication: Corynebacterium infection
     Route: 065
  9. EPINEPHRINE [Concomitant]
     Active Substance: EPINEPHRINE
     Indication: Upper airway obstruction
  10. PREDNISONE [Concomitant]
     Active Substance: PREDNISONE
     Indication: Corynebacterium infection
     Route: 065
  11. PREDNISONE [Concomitant]
     Active Substance: PREDNISONE
     Indication: Upper airway obstruction
  12. DIPHTHERIA ANTITOXIN [Concomitant]
     Active Substance: DIPHTHERIA ANTITOXIN
     Indication: Drug therapy
     Route: 065

REACTIONS (1)
  - Drug ineffective [Unknown]
